FAERS Safety Report 7218870-0 (Version None)
Quarter: 2011Q1

REPORT INFORMATION
  Report Type: 
  Country: None (occurrence: None)
  Receive Date: 20110110
  Receipt Date: 20110105
  Transmission Date: 20110831
  Serious: No
  Sender: FDA-Public Use
  Company Number: US-PFIZER INC-2011003165

PATIENT
  Sex: Male
  Weight: 88.435 kg

DRUGS (2)
  1. ALCOHOL [Suspect]
  2. VIAGRA [Suspect]
     Dosage: UNK
     Route: 048
     Dates: start: 20101203, end: 20101204

REACTIONS (2)
  - SELF-MEDICATION [None]
  - SOMNOLENCE [None]
